FAERS Safety Report 6717640-7 (Version None)
Quarter: 2010Q2

REPORT INFORMATION
  Report Type: 
  Country: None (occurrence: None)
  Receive Date: 20100510
  Receipt Date: 20100212
  Transmission Date: 20101027
  Serious: No
  Sender: FDA-Public Use
  Company Number: A0844250A

PATIENT
  Age: 58 Year
  Sex: Female

DRUGS (2)
  1. ALTABAX [Suspect]
     Dosage: 1APP TWICE PER DAY
     Route: 061
  2. CIPROFLOXACIN [Concomitant]
     Dosage: 500MG TWICE PER DAY

REACTIONS (4)
  - DRUG EFFECT DECREASED [None]
  - ERYTHEMA [None]
  - PRURITUS [None]
  - STAPHYLOCOCCAL INFECTION [None]
